FAERS Safety Report 7378463-1 (Version None)
Quarter: 2011Q1

REPORT INFORMATION
  Report Type: 
  Country: None (occurrence: None)
  Receive Date: 20110328
  Receipt Date: 20110316
  Transmission Date: 20110831
  Serious: Yes (Death)
  Sender: FDA-Public Use
  Company Number: IE-ELI_LILLY_AND_COMPANY-IE201103004898

PATIENT
  Sex: Female

DRUGS (11)
  1. ZOTON [Concomitant]
  2. GALFER [Concomitant]
  3. ASPIRIN [Concomitant]
  4. FURSEMIDE [Concomitant]
  5. MIDON [Concomitant]
  6. LANOXIN [Concomitant]
  7. CALCICHEW [Concomitant]
  8. ELTROXIN [Concomitant]
  9. PRAVASTATIN [Concomitant]
  10. FORTEO [Suspect]
     Indication: OSTEOPOROSIS
     Dosage: 20 UG, UNK
     Dates: start: 20110208
  11. QUININE SULFATE [Concomitant]

REACTIONS (1)
  - DEATH [None]
